FAERS Safety Report 5364179-X (Version None)
Quarter: 2007Q2

REPORT INFORMATION
  Report Type: 
  Country: None (occurrence: None)
  Receive Date: 20070620
  Receipt Date: 20070609
  Transmission Date: 20071010
  Serious: Yes (Other)
  Sender: FDA-Public Use
  Company Number: DE-PFIZER INC-2007048000

PATIENT
  Sex: Female

DRUGS (6)
  1. ATARAX [Suspect]
     Dosage: DAILY DOSE:1250MG
     Route: 048
  2. DOXEPIN HCL [Suspect]
     Dosage: DAILY DOSE:2000MG
     Route: 048
  3. IBUPROFEN [Suspect]
     Dosage: DAILY DOSE:36GRAM
     Route: 048
     Dates: start: 20070609, end: 20070609
  4. THIORIDAZINE HCL [Suspect]
     Dosage: DAILY DOSE:2500MG
     Route: 048
  5. MIRTAZAPINE [Suspect]
     Dosage: DAILY DOSE:1200MG
     Route: 048
  6. OLANZAPINE [Suspect]
     Dosage: DAILY DOSE:420MG
     Route: 048

REACTIONS (3)
  - EXTRAPYRAMIDAL DISORDER [None]
  - SOMNOLENCE [None]
  - SUICIDE ATTEMPT [None]
